FAERS Safety Report 9727660 (Version 1)
Quarter: 2013Q4

REPORT INFORMATION
  Report Type: Spontaneous
  Country: US (occurrence: US)
  Receive Date: 20131203
  Receipt Date: 20131203
  Transmission Date: 20140711
  Serious: No
  Sender: FDA-Public Use
  Company Number: US-009507513-1312USA001376

PATIENT
  Age: 36 Year
  Sex: Female

DRUGS (3)
  1. CLARITIN-D [Suspect]
     Indication: NASAL CONGESTION
     Dosage: UNK, UNKNOWN
     Route: 048
  2. CLARITIN-D [Suspect]
     Indication: RHINORRHOEA
  3. CLARITIN-D [Suspect]
     Indication: SINUS HEADACHE

REACTIONS (1)
  - Feeling jittery [Unknown]
